FAERS Safety Report 18968284 (Version 1)
Quarter: 2021Q1

REPORT INFORMATION
  Report Type: Other
  Country: US (occurrence: US)
  Receive Date: 20210304
  Receipt Date: 20210304
  Transmission Date: 20210420
  Serious: Yes (Other)
  Sender: FDA-Public Use
  Company Number: US-ROCHE-2757932

PATIENT

DRUGS (1)
  1. OCREVUS [Suspect]
     Active Substance: OCRELIZUMAB
     Indication: MULTIPLE SCLEROSIS
     Route: 065

REACTIONS (8)
  - JC polyomavirus test positive [Unknown]
  - Diabetes mellitus [Unknown]
  - Multiple sclerosis relapse [Unknown]
  - Anxiety [Unknown]
  - Depression [Unknown]
  - Migraine [Unknown]
  - Blood cholesterol increased [Unknown]
  - Irritable bowel syndrome [Unknown]

NARRATIVE: CASE EVENT DATE: 20201207
